FAERS Safety Report 18267672 (Version 2)
Quarter: 2020Q3

REPORT INFORMATION
  Report Type: Report from Study
  Country: US (occurrence: US)
  Receive Date: 20200915
  Receipt Date: 20200924
  Transmission Date: 20201103
  Serious: Yes (Other)
  Sender: FDA-Public Use
  Company Number: US-BAUSCH-BL-2020-025865

PATIENT
  Age: 72 Year
  Sex: Female
  Weight: 53.57 kg

DRUGS (2)
  1. ATIVAN [Suspect]
     Active Substance: LORAZEPAM
     Indication: ANXIETY
     Dosage: AS NEEDED.
     Route: 048
     Dates: start: 2016
  2. ATIVAN [Suspect]
     Active Substance: LORAZEPAM
     Indication: STRESS

REACTIONS (2)
  - Breast cancer [Recovered/Resolved]
  - Anxiety [Unknown]

NARRATIVE: CASE EVENT DATE: 201907
